FAERS Safety Report 17670438 (Version 1)
Quarter: 2020Q2

REPORT INFORMATION
  Report Type: Spontaneous
  Country: GB (occurrence: GB)
  Receive Date: 20200415
  Receipt Date: 20200415
  Transmission Date: 20200713
  Serious: Yes (Congenital Anomaly)
  Sender: FDA-Public Use
  Company Number: GB-TEVA-2020-GB-1223575

PATIENT
  Age: 24 Week
  Sex: Female
  Weight: .4 kg

DRUGS (1)
  1. SODIUM VALPROATE [Suspect]
     Active Substance: VALPROATE SODIUM
     Indication: EPILEPSY
     Route: 064

REACTIONS (6)
  - Developmental delay [Unknown]
  - Transposition of the great vessels [Unknown]
  - Hypoplastic left heart syndrome [Unknown]
  - Cardiac disorder [Unknown]
  - Spina bifida [Unknown]
  - Foetal exposure during pregnancy [Unknown]
